FAERS Safety Report 7808676-3 (Version None)
Quarter: 2011Q4

REPORT INFORMATION
  Report Type: 
  Country: None (occurrence: None)
  Receive Date: 20111006
  Receipt Date: 20110920
  Transmission Date: 20120403
  Serious: Yes (Hospitalization)
  Sender: FDA-Public Use
  Company Number: 2011MA014198

PATIENT
  Age: 49 Year
  Sex: Male

DRUGS (8)
  1. MAGNESIUM SULFATE [Suspect]
     Indication: ASTHMA
     Dosage: IV
     Route: 042
  2. BUDESONIDE [Concomitant]
  3. ASPIRIN [Concomitant]
  4. ATORVASTATIN [Concomitant]
  5. HYDROCORTONE [Suspect]
     Indication: ASTHMA
     Dosage: IV
     Route: 042
  6. SALMETEROL [Concomitant]
  7. DIGOXIN [Concomitant]
  8. ALBUTEROL SULFATE [Suspect]
     Indication: ASTHMA

REACTIONS (1)
  - LACTIC ACIDOSIS [None]
